FAERS Safety Report 26196494 (Version 1)
Quarter: 2025Q4

REPORT INFORMATION
  Report Type: Spontaneous
  Country: GB (occurrence: GB)
  Receive Date: 20251224
  Receipt Date: 20251224
  Transmission Date: 20260118
  Serious: Yes (Death, Life-Threatening, Hospitalization, Other)
  Sender: UNICHEM
  Company Number: GB-UNICHEM LABORATORIES LIMITED-UNI-2025-GB-004265

PATIENT

DRUGS (2)
  1. METRONIDAZOLE [Suspect]
     Active Substance: METRONIDAZOLE
     Indication: Diarrhoea
     Dosage: 10 MILLIGRAM PER KILOGRAM, HOURS (EVERY 6 HOURS)
     Route: 042
  2. METRONIDAZOLE [Suspect]
     Active Substance: METRONIDAZOLE
     Dosage: 7.5 MILLIGRAM PER KILOGRAM, HOURS (EVERY 6 HOURS)
     Route: 042

REACTIONS (5)
  - Hepatic necrosis [Fatal]
  - Shock [Unknown]
  - Steatorrhoea [Unknown]
  - Acute hepatic failure [Unknown]
  - Toxicity to various agents [Unknown]
